FAERS Safety Report 5780966-8 (Version None)
Quarter: 2008Q2

REPORT INFORMATION
  Report Type: 
  Country: None (occurrence: None)
  Receive Date: 20080620
  Receipt Date: 20080610
  Transmission Date: 20081010
  Serious: No
  Sender: FDA-Public Use
  Company Number: US-MERCK-0806USA00921

PATIENT
  Age: 46 Year
  Sex: Male

DRUGS (3)
  1. SINGULAIR [Suspect]
     Indication: HYPERSENSITIVITY
     Route: 048
     Dates: start: 20070101
  2. ALLEGRA [Concomitant]
     Route: 065
  3. ADVAIR DISKUS 100/50 [Concomitant]
     Route: 065

REACTIONS (7)
  - BLOOD CHLORIDE INCREASED [None]
  - BRONCHITIS [None]
  - CHRONIC SINUSITIS [None]
  - DIARRHOEA [None]
  - HYPOTENSION [None]
  - TACHYCARDIA [None]
  - VOMITING [None]
